FAERS Safety Report 7328464-4 (Version None)
Quarter: 2011Q1

REPORT INFORMATION
  Report Type: 
  Country: None (occurrence: None)
  Receive Date: 20110303
  Receipt Date: 20110228
  Transmission Date: 20110831
  Serious: Yes (Hospitalization, Other)
  Sender: FDA-Public Use
  Company Number: US-PFIZER INC-2010091942

PATIENT
  Sex: Female

DRUGS (1)
  1. CHANTIX [Suspect]
     Indication: SMOKING CESSATION THERAPY
     Dosage: UNK
     Dates: start: 20070227, end: 20070813

REACTIONS (6)
  - DEPRESSION [None]
  - PANIC ATTACK [None]
  - WITHDRAWAL SYNDROME [None]
  - ABNORMAL DREAMS [None]
  - SUICIDE ATTEMPT [None]
  - CRYING [None]
